FAERS Safety Report 5797710-0 (Version None)
Quarter: 2008Q3

REPORT INFORMATION
  Report Type: 
  Country: None (occurrence: None)
  Receive Date: 20080702
  Receipt Date: 20080701
  Transmission Date: 20090109
  Serious: Yes (Death)
  Sender: FDA-Public Use
  Company Number: JP-BRISTOL-MYERS SQUIBB COMPANY-14194906

PATIENT
  Age: 76 Year
  Sex: Female

DRUGS (5)
  1. GATIFLOXACIN [Suspect]
     Indication: ATYPICAL MYCOBACTERIAL INFECTION
     Route: 048
     Dates: start: 20080411, end: 20080417
  2. KLARICID [Concomitant]
     Route: 048
     Dates: start: 20080218, end: 20080417
  3. CODEINE SUL TAB [Concomitant]
     Route: 048
     Dates: start: 20080218, end: 20080417
  4. MAGNESIUM OXIDE [Concomitant]
     Route: 048
     Dates: start: 20080218, end: 20080417
  5. SELBEX [Concomitant]
     Route: 048
     Dates: start: 20080218, end: 20080417

REACTIONS (2)
  - ARRHYTHMIA [None]
  - HYPOGLYCAEMIA [None]
